FAERS Safety Report 21814462 (Version 3)
Quarter: 2023Q1

REPORT INFORMATION
  Report Type: Report from Study
  Country: US (occurrence: None)
  Receive Date: 20230104
  Receipt Date: 20230308
  Transmission Date: 20230417
  Serious: Yes (Life-Threatening, Hospitalization)
  Sender: FDA-Public Use
  Company Number: US-ROCHE-3255304

PATIENT
  Age: 71 Year
  Sex: Male
  Weight: 67 kg

DRUGS (7)
  1. ATEZOLIZUMAB [Suspect]
     Active Substance: ATEZOLIZUMAB
     Indication: Small cell lung cancer
     Dosage: LAST ADMINISTERED ON 27/JUN/2022?OVER 30-60 MINUTES ON DAY 1 OR 2 OF EACH CHEMOTHERAPY CYCLE
     Route: 041
     Dates: start: 20220405
  2. ETOPOSIDE [Suspect]
     Active Substance: ETOPOSIDE
     Indication: Small cell lung cancer
     Dosage: LAST ADMINISTERED ON 16/MAY/2022
     Route: 042
     Dates: start: 20220405
  3. CISPLATIN [Suspect]
     Active Substance: CISPLATIN
     Indication: Small cell lung cancer
     Dosage: LAST ADMINISTERED ON 18/MAY/2022
     Route: 042
     Dates: start: 20220405
  4. CARBOPLATIN [Suspect]
     Active Substance: CARBOPLATIN
     Indication: Small cell lung cancer
     Dosage: AUC=5
     Route: 042
     Dates: start: 20220405
  5. RIVAROXABAN [Concomitant]
     Active Substance: RIVAROXABAN
     Dates: start: 20220414
  6. ASPIRIN [Concomitant]
     Active Substance: ASPIRIN
     Dates: start: 20220415
  7. HEPARIN [Concomitant]
     Active Substance: HEPARIN SODIUM

REACTIONS (5)
  - Adrenal insufficiency [Recovered/Resolved with Sequelae]
  - Hypophysitis [Recovered/Resolved with Sequelae]
  - Encephalopathy [Recovered/Resolved with Sequelae]
  - Peripheral ischaemia [Recovered/Resolved]
  - Embolism arterial [Recovered/Resolved]

NARRATIVE: CASE EVENT DATE: 20220415
